FAERS Safety Report 4638603-1 (Version None)
Quarter: 2005Q2

REPORT INFORMATION
  Report Type: 
  Country: None (occurrence: None)
  Receive Date: 20050325
  Receipt Date: 20041119
  Transmission Date: 20051028
  Serious: No
  Sender: FDA-Public Use
  Company Number: USA041184236

PATIENT
  Age: 79 Year
  Sex: Female

DRUGS (8)
  1. FORTEO [Suspect]
     Indication: OSTEOPOROSIS
     Dates: start: 20040601
  2. CELLCEPT [Concomitant]
  3. SYNTHROID [Concomitant]
  4. ATENOLOL [Concomitant]
  5. VITAMIN D [Concomitant]
  6. CITRACAL (CALCIUM CITRATE) [Concomitant]
  7. MULTIVITAMIN [Concomitant]
  8. ATACAND [Concomitant]

REACTIONS (4)
  - ANOREXIA [None]
  - ASTHENIA [None]
  - FEELING ABNORMAL [None]
  - WEIGHT DECREASED [None]
